FAERS Safety Report 17864188 (Version 5)
Quarter: 2021Q1

REPORT INFORMATION
  Report Type: Report from Study
  Country: CN (occurrence: CN)
  Receive Date: 20200605
  Receipt Date: 20210302
  Transmission Date: 20210419
  Serious: Yes (Death, Other)
  Sender: FDA-Public Use
  Company Number: NVSC2020CN153608

PATIENT
  Age: 80 Year
  Sex: Male
  Weight: 55 kg

DRUGS (1)
  1. ENTRESTO [Suspect]
     Active Substance: SACUBITRIL\VALSARTAN
     Indication: CARDIAC FAILURE
     Dosage: 50 MG, BID
     Route: 048
     Dates: start: 20200410, end: 20200520

REACTIONS (12)
  - Gastrointestinal haemorrhage [Fatal]
  - Discoloured vomit [Fatal]
  - Blood loss anaemia [Unknown]
  - Blood pressure decreased [Fatal]
  - Dizziness [Unknown]
  - Cardiac arrest [Unknown]
  - Abdominal pain [Unknown]
  - Chest pain [Unknown]
  - Melaena [Fatal]
  - Shock haemorrhagic [Fatal]
  - Haematemesis [Fatal]
  - Hyperhidrosis [Unknown]

NARRATIVE: CASE EVENT DATE: 20200517
